FAERS Safety Report 16302024 (Version 4)
Quarter: 2020Q3

REPORT INFORMATION
  Report Type: Report from Study
  Country: JP (occurrence: JP)
  Receive Date: 20190512
  Receipt Date: 20200812
  Transmission Date: 20201102
  Serious: Yes (Death, Other)
  Sender: FDA-Public Use
  Company Number: PHJP2019JP005085

PATIENT
  Age: 87 Year
  Sex: Female

DRUGS (6)
  1. AMLODIPINE [Concomitant]
     Active Substance: AMLODIPINE BESYLATE
     Indication: PRODUCT USED FOR UNKNOWN INDICATION
     Dosage: UNK
     Route: 065
  2. DAIKENCHUTO [Concomitant]
     Active Substance: HERBALS
     Indication: PRODUCT USED FOR UNKNOWN INDICATION
     Dosage: UNK
     Route: 065
  3. MEKINIST [Suspect]
     Active Substance: TRAMETINIB DIMETHYL SULFOXIDE
     Indication: NON-SMALL CELL LUNG CANCER STAGE IV
     Dosage: 2 MG, UNK
     Route: 048
     Dates: start: 20180720, end: 20190321
  4. KEISHIKASHAKUYAKUDAIOTO [Concomitant]
     Active Substance: HERBALS
     Indication: PRODUCT USED FOR UNKNOWN INDICATION
     Dosage: UNK
     Route: 065
  5. TAFINLAR [Suspect]
     Active Substance: DABRAFENIB MESYLATE
     Indication: NON-SMALL CELL LUNG CANCER STAGE IV
     Dosage: 300 MG, UNK
     Route: 048
     Dates: start: 20180720, end: 20190321
  6. AZILVA [Concomitant]
     Active Substance: AZILSARTAN KAMEDOXOMIL
     Indication: PRODUCT USED FOR UNKNOWN INDICATION
     Dosage: UNK
     Route: 065

REACTIONS (9)
  - Deep vein thrombosis [Recovering/Resolving]
  - Urinary tract infection [Unknown]
  - Malaise [Unknown]
  - Pulmonary embolism [Recovering/Resolving]
  - Infection [Fatal]
  - Malignant neoplasm progression [Unknown]
  - Anaemia [Unknown]
  - Non-small cell lung cancer stage IV [Unknown]
  - Ejection fraction decreased [Unknown]

NARRATIVE: CASE EVENT DATE: 20181002
